FAERS Safety Report 16990302 (Version 1)
Quarter: 2019Q4

REPORT INFORMATION
  Report Type: Spontaneous
  Country: CN (occurrence: CN)
  Receive Date: 20191104
  Receipt Date: 20191104
  Transmission Date: 20200122
  Serious: Yes (Other)
  Sender: FDA-Public Use
  Company Number: CN-ROCHE-2461324

PATIENT

DRUGS (5)
  1. VEMURAFENIB. [Suspect]
     Active Substance: VEMURAFENIB
     Route: 048
  2. VEMURAFENIB. [Suspect]
     Active Substance: VEMURAFENIB
     Indication: LUNG ADENOCARCINOMA
     Route: 065
  3. OSIMERTINIB. [Suspect]
     Active Substance: OSIMERTINIB
     Indication: LUNG ADENOCARCINOMA
     Route: 065
  4. OSIMERTINIB. [Suspect]
     Active Substance: OSIMERTINIB
     Route: 048
  5. VEMURAFENIB. [Suspect]
     Active Substance: VEMURAFENIB
     Route: 048

REACTIONS (2)
  - Fatigue [Recovering/Resolving]
  - Palpitations [Recovering/Resolving]
